FAERS Safety Report 8588594-6 (Version None)
Quarter: 2012Q3

REPORT INFORMATION
  Report Type: 
  Country: None (occurrence: None)
  Receive Date: 20120813
  Receipt Date: 20120803
  Transmission Date: 20120928
  Serious: Yes (Other)
  Sender: FDA-Public Use
  Company Number: US-JNJFOC-20100704170

PATIENT
  Sex: Female

DRUGS (6)
  1. DEPO-MEDROL [Suspect]
     Indication: COUGH
     Route: 042
  2. LEVAQUIN [Suspect]
     Indication: URINARY TRACT INFECTION
     Route: 048
  3. LEVAQUIN [Suspect]
     Indication: BACTERAEMIA
     Route: 042
  4. DEPO-MEDROL [Suspect]
     Route: 048
  5. LEVAQUIN [Suspect]
     Indication: INDWELLING CATHETER MANAGEMENT
     Route: 048
  6. LEVAQUIN [Suspect]
     Indication: ESCHERICHIA INFECTION
     Route: 048

REACTIONS (4)
  - TENDONITIS [None]
  - ROTATOR CUFF SYNDROME [None]
  - TRIGGER FINGER [None]
  - TENOSYNOVITIS STENOSANS [None]
